FAERS Safety Report 5126741-9 (Version None)
Quarter: 2006Q4

REPORT INFORMATION
  Report Type: 
  Country: None (occurrence: None)
  Receive Date: 20061012
  Receipt Date: 20061012
  Transmission Date: 20070319
  Serious: Yes (Hospitalization)
  Sender: FDA-Public Use
  Company Number: None

PATIENT
  Age: 71 Year
  Sex: Male
  Weight: 66.6788 kg

DRUGS (8)
  1. COUMADIN [Suspect]
     Indication: DEEP VEIN THROMBOSIS
     Dosage: 2MG PO QHS
  2. LOVENOX [Suspect]
     Dosage: 70MG SUBQ BID
     Route: 058
  3. FLOMAX [Concomitant]
  4. AUGMENTIN [Concomitant]
  5. DILAUDID [Concomitant]
  6. TYLENOL [Concomitant]
  7. PROTONIX [Concomitant]
  8. PERCOCET [Concomitant]

REACTIONS (2)
  - ARTHRALGIA [None]
  - RETROPERITONEAL HAEMORRHAGE [None]
